FAERS Safety Report 8771188 (Version 1)
Quarter: 2012Q4

REPORT INFORMATION
  Report Type: 
  Country: JP (occurrence: JP)
  Receive Date: 20120905
  Receipt Date: 20120905
  Transmission Date: 20130627
  Serious: Yes (Death, Hospitalization)
  Sender: FDA-Public Use
  Company Number: JP-TEVA-356198ISR

PATIENT
  Age: 85 Year
  Sex: Female

DRUGS (4)
  1. PREDNISOLONE [Suspect]
     Indication: VIITH NERVE PARALYSIS
     Dosage: 80mg
     Route: 042
  2. PREDNISOLONE [Suspect]
     Indication: VIITH NERVE PARALYSIS
     Dosage: 60mg
     Route: 042
  3. PREDNISOLONE [Suspect]
     Indication: VIITH NERVE PARALYSIS
     Dosage: 40mg
     Route: 042
  4. PREDNISOLONE [Suspect]
     Indication: VIITH NERVE PARALYSIS
     Dosage: 20mg
     Route: 042

REACTIONS (5)
  - Endocarditis [Fatal]
  - Serratia infection [Fatal]
  - Cardiac failure [Fatal]
  - Aspiration [Fatal]
  - Cerebral infarction [Fatal]
